FAERS Safety Report 5307961-7 (Version None)
Quarter: 2007Q2

REPORT INFORMATION
  Report Type: 
  Country: None (occurrence: None)
  Receive Date: 20070426
  Receipt Date: 20070413
  Transmission Date: 20071010
  Serious: Yes (Disabling)
  Sender: FDA-Public Use
  Company Number: 2007CG00505

PATIENT
  Age: 19640 Day
  Sex: Male
  Weight: 86 kg

DRUGS (3)
  1. OMEPRAZOLE [Suspect]
     Indication: PROPHYLAXIS AGAINST GASTROINTESTINAL ULCER
     Route: 048
     Dates: start: 20061015, end: 20070315
  2. BREXIN [Concomitant]
     Indication: TENDONITIS
     Dates: start: 20061015
  3. BREXIN [Concomitant]
     Indication: TENOSYNOVITIS
     Dates: start: 20061015

REACTIONS (3)
  - CARPAL TUNNEL SYNDROME [None]
  - JOINT SWELLING [None]
  - OEDEMA PERIPHERAL [None]
